FAERS Safety Report 9537513 (Version 4)
Quarter: 2014Q1

REPORT INFORMATION
  Report Type: Spontaneous
  Country: MX (occurrence: MX)
  Receive Date: 20130919
  Receipt Date: 20140220
  Transmission Date: 20141002
  Serious: Yes (Other)
  Sender: FDA-Public Use
  Company Number: MX-ABBVIE-13P-107-1143652-00

PATIENT
  Age: 21 Year
  Sex: Male

DRUGS (2)
  1. HUMIRA [Suspect]
     Indication: COLITIS ULCERATIVE
     Dates: start: 2011
  2. AZATHIOPRINE [Concomitant]
     Indication: COLITIS ULCERATIVE
     Route: 048
     Dates: start: 2011

REACTIONS (1)
  - Anogenital dysplasia [Not Recovered/Not Resolved]
